FAERS Safety Report 16824827 (Version 5)
Quarter: 2022Q2

REPORT INFORMATION
  Report Type: Spontaneous
  Country: US (occurrence: None)
  Receive Date: 20190918
  Receipt Date: 20220623
  Transmission Date: 20220720
  Serious: Yes (Other)
  Sender: FDA-Public Use
  Company Number: 2018SF47864

PATIENT
  Age: 16320 Day
  Sex: Female
  Weight: 117.9 kg

DRUGS (87)
  1. NEXIUM [Suspect]
     Active Substance: ESOMEPRAZOLE MAGNESIUM
     Indication: Gastrooesophageal reflux disease
     Route: 048
     Dates: start: 20010101
  2. NEXIUM [Suspect]
     Active Substance: ESOMEPRAZOLE MAGNESIUM
     Indication: Gastrooesophageal reflux disease
     Route: 048
  3. NEXIUM [Suspect]
     Active Substance: ESOMEPRAZOLE MAGNESIUM
     Indication: Gastrooesophageal reflux disease
     Dosage: GENERIC
     Route: 065
  4. NEXIUM [Suspect]
     Active Substance: ESOMEPRAZOLE MAGNESIUM
     Indication: Gastrooesophageal reflux disease
     Route: 048
     Dates: start: 20060803
  5. NEXIUM 24HR [Suspect]
     Active Substance: ESOMEPRAZOLE MAGNESIUM
     Indication: Gastrooesophageal reflux disease
     Route: 048
     Dates: start: 20010101
  6. NEXIUM 24HR [Suspect]
     Active Substance: ESOMEPRAZOLE MAGNESIUM
     Indication: Gastrooesophageal reflux disease
     Route: 048
  7. PRILOSEC [Suspect]
     Active Substance: OMEPRAZOLE MAGNESIUM
     Indication: Gastrooesophageal reflux disease
     Route: 048
     Dates: start: 20010101
  8. PRILOSEC [Suspect]
     Active Substance: OMEPRAZOLE MAGNESIUM
     Indication: Gastrooesophageal reflux disease
     Dosage: GENERIC
     Route: 065
  9. PRILOSEC [Suspect]
     Active Substance: OMEPRAZOLE MAGNESIUM
     Indication: Gastrooesophageal reflux disease
     Dosage: GENERIC
     Route: 065
     Dates: start: 20110323
  10. FLUOXETINE [Concomitant]
     Active Substance: FLUOXETINE HYDROCHLORIDE
  11. DYAZIDE [Concomitant]
     Active Substance: HYDROCHLOROTHIAZIDE\TRIAMTERENE
  12. ZANTAC [Concomitant]
     Active Substance: RANITIDINE HYDROCHLORIDE
  13. GLIMEPIRIDE [Concomitant]
     Active Substance: GLIMEPIRIDE
  14. ACYCLOVIR [Concomitant]
     Active Substance: ACYCLOVIR
  15. AZITHROMYCIN [Concomitant]
     Active Substance: AZITHROMYCIN
  16. CEPHALEXIN [Concomitant]
     Active Substance: CEPHALEXIN
  17. LEVAQUIN [Concomitant]
     Active Substance: LEVOFLOXACIN
  18. DOXYCYCLINE [Concomitant]
     Active Substance: DOXYCYCLINE
  19. LOSARTAN [Concomitant]
     Active Substance: LOSARTAN
  20. TRAMADOL [Concomitant]
     Active Substance: TRAMADOL
  21. FLUCONAZOLE [Concomitant]
     Active Substance: FLUCONAZOLE
  22. IBUPROFEN [Concomitant]
     Active Substance: IBUPROFEN
     Indication: Pain
  23. ACETAMINOPHEN [Concomitant]
     Active Substance: ACETAMINOPHEN
     Indication: Pain
  24. BENADRYL [Concomitant]
     Active Substance: DIPHENHYDRAMINE HYDROCHLORIDE
     Indication: Hypersensitivity
  25. IRON [Concomitant]
     Active Substance: IRON
     Indication: Anaemia
     Dates: start: 2009
  26. BIOTIN [Concomitant]
     Active Substance: BIOTIN
     Indication: Discomfort
     Dates: start: 2009
  27. HERBALS\TURMERIC [Concomitant]
     Active Substance: HERBALS\TURMERIC
     Indication: Inflammation
     Dates: start: 2009
  28. MELATONIN [Concomitant]
     Active Substance: MELATONIN
     Indication: Sleep disorder
     Dates: start: 2009
  29. VITAMIN E [Concomitant]
     Active Substance: .ALPHA.-TOCOPHEROL
     Indication: Inflammation
     Dates: start: 2009
  30. DIETARY SUPPLEMENT [Concomitant]
     Active Substance: DIETARY SUPPLEMENT
     Indication: Menopause
     Dates: start: 2009
  31. ROLAIDS [Concomitant]
     Active Substance: CALCIUM CARBONATE\MAGNESIUM HYDROXIDE
  32. AMOXICILLIN [Concomitant]
     Active Substance: AMOXICILLIN
  33. FLUTICASONE [Concomitant]
     Active Substance: FLUTICASONE
  34. TRIAMCINOLON [Concomitant]
  35. CYCLOBENZAPRINE [Concomitant]
     Active Substance: CYCLOBENZAPRINE
     Indication: Myalgia
     Dates: start: 2021
  36. DIAZEPAM [Concomitant]
     Active Substance: DIAZEPAM
  37. DULERA [Concomitant]
     Active Substance: FORMOTEROL FUMARATE DIHYDRATE\MOMETASONE FUROATE
     Indication: Asthma
     Dates: start: 2021
  38. MUPIROCIN [Concomitant]
     Active Substance: MUPIROCIN
  39. THEOPHYLLINE [Concomitant]
     Active Substance: THEOPHYLLINE
     Indication: Asthma
     Dates: start: 2020
  40. MONTELUKAST [Concomitant]
     Active Substance: MONTELUKAST SODIUM
     Indication: Asthma
     Dates: start: 2020
  41. PROMETHAZINE [Concomitant]
     Active Substance: PROMETHAZINE HYDROCHLORIDE
  42. HYOSCYAMINE [Concomitant]
     Active Substance: HYOSCYAMINE
  43. LEVOTHYROXINE [Concomitant]
     Active Substance: LEVOTHYROXINE
     Indication: Hypothyroidism
     Dates: start: 2021
  44. METFORMIN [Concomitant]
     Active Substance: METFORMIN HYDROCHLORIDE
  45. HUMULIN N [Concomitant]
     Active Substance: INSULIN HUMAN
  46. ATENOLOL [Concomitant]
     Active Substance: ATENOLOL
     Indication: Hypertension
     Dates: start: 2021
  47. NOVOLIN R [Concomitant]
     Active Substance: INSULIN HUMAN
  48. LYRICA [Concomitant]
     Active Substance: PREGABALIN
  49. ALPRAZOLAM [Concomitant]
     Active Substance: ALPRAZOLAM
  50. GABAPENTIN [Concomitant]
     Active Substance: GABAPENTIN
  51. ADVAIR DISKUS [Concomitant]
     Active Substance: FLUTICASONE PROPIONATE\SALMETEROL XINAFOATE
  52. VANCOMYCIN [Concomitant]
     Active Substance: VANCOMYCIN
  53. UNSPECIFIED INGREDIENT [Concomitant]
     Active Substance: UNSPECIFIED INGREDIENT
  54. BACTRIM [Concomitant]
     Active Substance: SULFAMETHOXAZOLE\TRIMETHOPRIM
  55. CLINDAMYCIN [Concomitant]
     Active Substance: CLINDAMYCIN
  56. BARIUM SULFATE [Concomitant]
     Active Substance: BARIUM SULFATE
  57. CITRIC ACID [Concomitant]
     Active Substance: CITRIC ACID MONOHYDRATE
  58. DIMETHICONE [Concomitant]
     Active Substance: DIMETHICONE
  59. SODIUM BICARBONATE [Concomitant]
     Active Substance: SODIUM BICARBONATE
  60. COMPAZINE [Concomitant]
     Active Substance: PROCHLORPERAZINE MALEATE
  61. FLORICET [Concomitant]
  62. ROXICODONE [Concomitant]
     Active Substance: OXYCODONE HYDROCHLORIDE
  63. BIAXIN [Concomitant]
     Active Substance: CLARITHROMYCIN
  64. NORFLEX [Concomitant]
     Active Substance: ORPHENADRINE CITRATE
  65. HYDROCHLOROTHIAZIDE [Concomitant]
     Active Substance: HYDROCHLOROTHIAZIDE
  66. JANUVIA [Concomitant]
     Active Substance: SITAGLIPTIN PHOSPHATE
  67. ACETAMINOPHEN\DICHLORALPHENAZONE\ISOMETHEPTENE [Concomitant]
     Active Substance: ACETAMINOPHEN\DICHLORALPHENAZONE\ISOMETHEPTENE
  68. DILAUDID [Concomitant]
     Active Substance: HYDROMORPHONE HYDROCHLORIDE
  69. MACROBID [Concomitant]
     Active Substance: NITROFURANTOIN\NITROFURANTOIN MONOHYDRATE
  70. CLARITIN [Concomitant]
     Active Substance: LORATADINE
  71. MAGNESIUM OXIDE [Concomitant]
     Active Substance: MAGNESIUM OXIDE
  72. MYCOSTATIN [Concomitant]
     Active Substance: NYSTATIN
  73. CLINDAMYCIN HYDROCHLORIDE [Concomitant]
     Active Substance: CLINDAMYCIN HYDROCHLORIDE
  74. AMOXICILLIN\CLAVULANATE POTASSIUM [Concomitant]
     Active Substance: AMOXICILLIN\CLAVULANATE POTASSIUM
     Indication: Sinusitis
     Dates: start: 2020
  75. CHLORTHALIDONE [Concomitant]
     Active Substance: CHLORTHALIDONE
     Indication: Hypertension
     Dates: start: 2021
  76. JARDIANCE [Concomitant]
     Active Substance: EMPAGLIFLOZIN
     Indication: Diabetes mellitus
     Dates: start: 2021
  77. LEVOCETIRIZINE [Concomitant]
     Active Substance: LEVOCETIRIZINE
     Indication: Hypersensitivity
     Dates: start: 2021
  78. LIOTHYRONINE [Concomitant]
     Active Substance: LIOTHYRONINE
     Indication: Hypothyroidism
     Dates: start: 2021
  79. METHOCARBAMOL [Concomitant]
     Active Substance: METHOCARBAMOL
     Indication: Myalgia
     Dates: start: 2021
  80. OZEMPIC [Concomitant]
     Active Substance: SEMAGLUTIDE
     Indication: Diabetes mellitus
     Dates: start: 2021, end: 2022
  81. PIOGLITAZONE [Concomitant]
     Active Substance: PIOGLITAZONE
     Indication: Diabetes mellitus
     Dates: start: 2020, end: 2021
  82. ROSUVASTATIN [Concomitant]
     Active Substance: ROSUVASTATIN
     Indication: Blood cholesterol
     Dates: start: 2022
  83. POTASSIUM [Concomitant]
     Active Substance: POTASSIUM
     Indication: Nephrolithiasis
     Dates: start: 2021, end: 2022
  84. CALCIUM\CHOLECALCIFEROL [Concomitant]
     Active Substance: CALCIUM\CHOLECALCIFEROL
     Indication: Nephrolithiasis
     Dates: start: 2021, end: 2022
  85. FAMOTIDINE [Concomitant]
     Active Substance: FAMOTIDINE
     Dates: start: 20200709
  86. MAGNESIUM GLYCINATE [Concomitant]
     Active Substance: MAGNESIUM GLYCINATE
     Dates: start: 20210823
  87. TAURINE [Concomitant]
     Active Substance: TAURINE
     Dates: start: 20210301

REACTIONS (6)
  - Acute kidney injury [Unknown]
  - Chronic kidney disease [Not Recovered/Not Resolved]
  - Renal failure [Unknown]
  - Nephrogenic anaemia [Unknown]
  - Chronic kidney disease-mineral and bone disorder [Unknown]
  - Renal tubular necrosis [Unknown]

NARRATIVE: CASE EVENT DATE: 20110407
